FAERS Safety Report 10464796 (Version 2)
Quarter: 2016Q2

REPORT INFORMATION
  Report Type: Spontaneous
  Country: US (occurrence: US)
  Receive Date: 20140919
  Receipt Date: 20160614
  Transmission Date: 20160815
  Serious: No
  Sender: FDA-Public Use
  Company Number: US-BAYER-2014-139983

PATIENT
  Age: 22 Year
  Sex: Female

DRUGS (1)
  1. MIRENA [Suspect]
     Active Substance: LEVONORGESTREL
     Indication: CONTRACEPTION
     Dosage: 20 MCG/24HR, CONT
     Route: 015
     Dates: start: 201303

REACTIONS (6)
  - Breast tenderness [None]
  - Menstruation delayed [None]
  - Hirsutism [None]
  - Abdominal pain lower [None]
  - Back pain [None]
  - Hypomenorrhoea [None]

NARRATIVE: CASE EVENT DATE: 201409
